FAERS Safety Report 7957830-9 (Version None)
Quarter: 2011Q4

REPORT INFORMATION
  Report Type: 
  Country: None (occurrence: None)
  Receive Date: 20111205
  Receipt Date: 20111129
  Transmission Date: 20120403
  Serious: Yes (Other)
  Sender: FDA-Public Use
  Company Number: US-JNJFOC-20070200885

PATIENT
  Sex: Female

DRUGS (7)
  1. ZYPREXA [Suspect]
     Indication: DEPRESSION
     Dosage: ONE-HALF
     Route: 048
  2. CELEXA [Concomitant]
  3. WELLBUTRIN XL [Concomitant]
  4. RISPERDAL [Suspect]
     Indication: DEPRESSION
     Route: 048
  5. ELAVIL [Suspect]
     Indication: DEPRESSION
     Route: 065
  6. RISPERDAL [Suspect]
     Indication: ANXIETY
     Route: 048
  7. ZYPREXA [Suspect]
     Indication: ANXIETY
     Dosage: ONE-HALF
     Route: 048

REACTIONS (2)
  - WEIGHT INCREASED [None]
  - TYPE 2 DIABETES MELLITUS [None]
